FAERS Safety Report 25725383 (Version 1)
Quarter: 2025Q3

REPORT INFORMATION
  Report Type: Spontaneous
  Country: US (occurrence: US)
  Receive Date: 20250826
  Receipt Date: 20250826
  Transmission Date: 20251021
  Serious: No
  Sender: ROCHE
  Company Number: US-ROCHE-10000369103

PATIENT
  Age: 66 Year
  Sex: Male
  Weight: 102 kg

DRUGS (1)
  1. OCREVUS [Suspect]
     Active Substance: OCRELIZUMAB
     Indication: Multiple sclerosis
     Dosage: FIRST DOSE OF OCRELIZUMAB
     Route: 042
     Dates: start: 20250818

REACTIONS (2)
  - Pruritus [Recovered/Resolved]
  - Ear pruritus [Recovered/Resolved]

NARRATIVE: CASE EVENT DATE: 20250818
